FAERS Safety Report 6489153-1 (Version None)
Quarter: 2009Q4

REPORT INFORMATION
  Report Type: 
  Country: None (occurrence: None)
  Receive Date: 20091210
  Receipt Date: 20091012
  Transmission Date: 20100525
  Serious: No
  Sender: FDA-Public Use
  Company Number: US-AMGEN-KDL365841

PATIENT
  Sex: Male
  Weight: 129.4 kg

DRUGS (5)
  1. ENBREL [Suspect]
     Indication: SPONDYLOARTHROPATHY
     Route: 058
     Dates: start: 20090831, end: 20090921
  2. SYNTHROID [Concomitant]
  3. SIMVASTATIN [Concomitant]
  4. TYLENOL W/ CODEINE NO. 3 [Concomitant]
  5. VICODIN [Concomitant]

REACTIONS (5)
  - INJECTION SITE PAIN [None]
  - INJECTION SITE REACTION [None]
  - INJECTION SITE URTICARIA [None]
  - PYREXIA [None]
  - SWELLING FACE [None]
